FAERS Safety Report 4515435-6 (Version None)
Quarter: 2004Q4

REPORT INFORMATION
  Report Type: 
  Country: None (occurrence: None)
  Receive Date: 20041126
  Receipt Date: 20041118
  Transmission Date: 20050328
  Serious: Yes (Hospitalization)
  Sender: FDA-Public Use
  Company Number: 001-0981-993137

PATIENT
  Age: 59 Year
  Sex: Male
  Weight: 103.4201 kg

DRUGS (12)
  1. ATORVASTATIN (ATORVASTATIN) [Suspect]
     Indication: CORONARY ARTERY DISEASE
     Dosage: SEE IMAGE
     Route: 048
     Dates: start: 19980921, end: 19981115
  2. ATORVASTATIN (ATORVASTATIN) [Suspect]
     Indication: CORONARY ARTERY DISEASE
     Dosage: SEE IMAGE
     Route: 048
     Dates: start: 19981116
  3. FELODIPINE [Concomitant]
  4. HYDROCHLOROTHIAZIDE [Concomitant]
  5. FOLIC ACID [Concomitant]
  6. ATENOLOL (ATENIOLOL) [Concomitant]
  7. GLIPIZIDE [Concomitant]
  8. OMEPRAZOLE [Concomitant]
  9. ISOSORBIDE (ISOSORBIDE0 [Concomitant]
  10. CISAPRIDE (CISAPRIDE) [Concomitant]
  11. BUPROPION HYDROCHLORIDE [Concomitant]
  12. NITROGLYCERIN [Concomitant]

REACTIONS (4)
  - HYPOAESTHESIA [None]
  - PERIPHERAL VASCULAR DISORDER [None]
  - PNEUMONIA [None]
  - THORACIC OUTLET SYNDROME [None]
